FAERS Safety Report 9442890 (Version 2)
Quarter: 2013Q3

REPORT INFORMATION
  Report Type: Spontaneous
  Country: GB (occurrence: GB)
  Receive Date: 20130806
  Receipt Date: 20130826
  Transmission Date: 20140515
  Serious: Yes (Other)
  Sender: FDA-Public Use
  Company Number: GB-PFIZER INC-2013220597

PATIENT
  Age: 66 Year
  Sex: Female

DRUGS (2)
  1. AMLODIPINE BESILATE [Suspect]
     Indication: HYPERTENSION
     Dosage: UNK
     Dates: start: 20130523, end: 20130531
  2. NITROGLICERIN [Concomitant]
     Indication: ANGINA PECTORIS
     Dosage: UNK

REACTIONS (7)
  - Local swelling [Recovered/Resolved]
  - Gait disturbance [Recovered/Resolved]
  - Joint swelling [Recovered/Resolved]
  - Joint swelling [Recovered/Resolved]
  - Visual impairment [Recovered/Resolved]
  - Fluid retention [Recovered/Resolved]
  - Drug ineffective [Recovered/Resolved]
